FAERS Safety Report 17352818 (Version 3)
Quarter: 2022Q2

REPORT INFORMATION
  Report Type: Other
  Country: US (occurrence: None)
  Receive Date: 20200131
  Receipt Date: 20220519
  Transmission Date: 20220721
  Serious: Yes (Death, Other)
  Sender: FDA-Public Use
  Company Number: US-ROCHE-2532554

PATIENT
  Sex: Female
  Weight: 80.318 kg

DRUGS (4)
  1. OCREVUS [Suspect]
     Active Substance: OCRELIZUMAB
     Indication: Relapsing-remitting multiple sclerosis
     Dosage: PREVIOUS DATE OF TREATMENT: 19/SEP/2019, ?ANTICIPATED DOT, 15/MAR/2020
     Route: 042
  2. OCREVUS [Suspect]
     Active Substance: OCRELIZUMAB
     Dosage: DATE OF TREATMENTS : 09/MAR/2021, 08/SEP/2020
     Route: 042
     Dates: start: 20210308
  3. MIRENA [Concomitant]
     Active Substance: LEVONORGESTREL
     Dosage: INTRA UTERAL
     Route: 015
  4. ADDERALL [Concomitant]
     Active Substance: AMPHETAMINE ASPARTATE\AMPHETAMINE SULFATE\DEXTROAMPHETAMINE SACCHARATE\DEXTROAMPHETAMINE SULFATE
     Indication: Fatigue
     Route: 048

REACTIONS (9)
  - Completed suicide [Fatal]
  - JC polyomavirus test positive [Unknown]
  - Syncope [Not Recovered/Not Resolved]
  - Loss of consciousness [Not Recovered/Not Resolved]
  - Bipolar disorder [Unknown]
  - Anxiety [Unknown]
  - Borderline personality disorder [Unknown]
  - Fatigue [Unknown]
  - Vitamin D deficiency [Unknown]
